FAERS Safety Report 10154412 (Version 1)
Quarter: 2014Q2

REPORT INFORMATION
  Report Type: Spontaneous
  Country: US (occurrence: US)
  Receive Date: 20140506
  Receipt Date: 20140506
  Transmission Date: 20141212
  Serious: No
  Sender: FDA-Public Use
  Company Number: US-PFIZER INC-2014120880

PATIENT
  Age: 70 Year
  Sex: Male

DRUGS (1)
  1. GENOTROPIN [Suspect]
     Dosage: 0.2 MG, UNK
     Dates: start: 201404, end: 201404

REACTIONS (2)
  - Injection site discolouration [Unknown]
  - Drug ineffective [Unknown]
